FAERS Safety Report 19581931 (Version 1)
Quarter: 2021Q3

REPORT INFORMATION
  Report Type: Spontaneous
  Country: NL (occurrence: NL)
  Receive Date: 20210720
  Receipt Date: 20210720
  Transmission Date: 20211014
  Serious: Yes (Other)
  Sender: FDA-Public Use
  Company Number: NL-MYLANLABS-2021M1042853

PATIENT
  Age: 52 Year
  Sex: Female
  Weight: 104 kg

DRUGS (1)
  1. TELMISARTAN/HYDROCHLOROTHIAZIDE MYLAN 80 MG/12.5 MG TABLETS [Suspect]
     Active Substance: HYDROCHLOROTHIAZIDE\TELMISARTAN
     Indication: HYPERTENSION
     Dosage: 1 DOSAGE FORM, QD (1X PER DAY)
     Dates: start: 202002

REACTIONS (4)
  - Dyspnoea [Recovered/Resolved]
  - Renal impairment [Recovered/Resolved]
  - Vitamin D decreased [Recovered/Resolved]
  - Fatigue [Recovered/Resolved]

NARRATIVE: CASE EVENT DATE: 20200217
